FAERS Safety Report 6794949-2 (Version None)
Quarter: 2010Q2

REPORT INFORMATION
  Report Type: 
  Country: None (occurrence: None)
  Receive Date: 20100625
  Receipt Date: 20100614
  Transmission Date: 20101027
  Serious: Yes (Other)
  Sender: FDA-Public Use
  Company Number: CN-PFIZER INC-2010075556

PATIENT
  Age: 80 Year
  Sex: Female

DRUGS (1)
  1. GLUCOTROL [Suspect]
     Dosage: UNK
     Route: 048

REACTIONS (3)
  - BLINDNESS UNILATERAL [None]
  - VISION BLURRED [None]
  - VISUAL ACUITY REDUCED [None]
